FAERS Safety Report 25942626 (Version 1)
Quarter: 2025Q4

REPORT INFORMATION
  Report Type: Spontaneous
  Country: EU (occurrence: EU)
  Receive Date: 20251021
  Receipt Date: 20251021
  Transmission Date: 20260118
  Serious: Yes (Other)
  Sender: Haleon PLC
  Company Number: None

PATIENT
  Age: 56 Year
  Sex: Female

DRUGS (3)
  1. VOLTAREN [Suspect]
     Active Substance: DICLOFENAC SODIUM
     Indication: Neck pain
     Dosage: 1 DOSAGE FORM
     Route: 048
  2. KETOPROFEN [Suspect]
     Active Substance: KETOPROFEN
     Indication: Neck pain
     Dosage: 1 DOSAGE FORM
     Route: 048
  3. TIAPROFENIC ACID [Suspect]
     Active Substance: TIAPROFENIC ACID
     Indication: Neck pain
     Dosage: 1 DOSAGE FORM
     Route: 048

REACTIONS (3)
  - Laryngeal dyspnoea [Recovered/Resolved]
  - Nausea [Recovered/Resolved]
  - Chest discomfort [Recovered/Resolved]
